FAERS Safety Report 6472587-9 (Version None)
Quarter: 2009Q4

REPORT INFORMATION
  Report Type: 
  Country: None (occurrence: None)
  Receive Date: 20091203
  Receipt Date: 20081208
  Transmission Date: 20100525
  Serious: No
  Sender: FDA-Public Use
  Company Number: US-AMGEN-KDL322985

PATIENT
  Sex: Female
  Weight: 88.5 kg

DRUGS (5)
  1. ENBREL [Suspect]
     Indication: PSORIATIC ARTHROPATHY
     Route: 058
     Dates: start: 20081114
  2. METHOTREXATE [Concomitant]
     Route: 048
  3. FOLIC ACID [Concomitant]
  4. CELEXA [Concomitant]
  5. IBUPROFEN [Concomitant]

REACTIONS (3)
  - FALL [None]
  - MUSCULOSKELETAL CHEST PAIN [None]
  - UPPER RESPIRATORY TRACT INFECTION [None]
